FAERS Safety Report 25199801 (Version 1)
Quarter: 2025Q2

REPORT INFORMATION
  Report Type: Spontaneous
  Country: FR (occurrence: FR)
  Receive Date: 20250415
  Receipt Date: 20250415
  Transmission Date: 20250717
  Serious: Yes (Hospitalization)
  Sender: MYLAN
  Company Number: None

PATIENT
  Age: 67 Year
  Sex: Male
  Weight: 83 kg

DRUGS (52)
  1. PANTOPRAZOLE [Suspect]
     Active Substance: PANTOPRAZOLE
     Indication: Blood cholesterol
     Dosage: 20 MILLIGRAM, QD
     Dates: end: 20250201
  2. PANTOPRAZOLE [Suspect]
     Active Substance: PANTOPRAZOLE
     Dosage: 20 MILLIGRAM, QD
     Route: 048
     Dates: end: 20250201
  3. PANTOPRAZOLE [Suspect]
     Active Substance: PANTOPRAZOLE
     Dosage: 20 MILLIGRAM, QD
     Route: 048
     Dates: end: 20250201
  4. PANTOPRAZOLE [Suspect]
     Active Substance: PANTOPRAZOLE
     Dosage: 20 MILLIGRAM, QD
     Dates: end: 20250201
  5. CEFIXIME [Suspect]
     Active Substance: CEFIXIME
     Indication: Urinary tract infection
     Dosage: 6 DOSAGE FORM, QW
     Dates: start: 20250121, end: 20250201
  6. CEFIXIME [Suspect]
     Active Substance: CEFIXIME
     Dosage: 6 DOSAGE FORM, QW
     Route: 048
     Dates: start: 20250121, end: 20250201
  7. CEFIXIME [Suspect]
     Active Substance: CEFIXIME
     Dosage: 6 DOSAGE FORM, QW
     Route: 048
     Dates: start: 20250121, end: 20250201
  8. CEFIXIME [Suspect]
     Active Substance: CEFIXIME
     Dosage: 6 DOSAGE FORM, QW
     Dates: start: 20250121, end: 20250201
  9. IRBESARTAN [Suspect]
     Active Substance: IRBESARTAN
     Indication: Hypertension
     Dosage: 1 DOSAGE FORM, QD
     Dates: end: 20250201
  10. IRBESARTAN [Suspect]
     Active Substance: IRBESARTAN
     Dosage: 1 DOSAGE FORM, QD
     Route: 048
     Dates: end: 20250201
  11. IRBESARTAN [Suspect]
     Active Substance: IRBESARTAN
     Dosage: 1 DOSAGE FORM, QD
     Route: 048
     Dates: end: 20250201
  12. IRBESARTAN [Suspect]
     Active Substance: IRBESARTAN
     Dosage: 1 DOSAGE FORM, QD
     Dates: end: 20250201
  13. BISOPROLOL [Suspect]
     Active Substance: BISOPROLOL
     Indication: Cardiac failure
     Dosage: 1.25 MILLIGRAM, QD
     Dates: end: 20250201
  14. BISOPROLOL [Suspect]
     Active Substance: BISOPROLOL
     Dosage: 1.25 MILLIGRAM, QD
     Route: 048
     Dates: end: 20250201
  15. BISOPROLOL [Suspect]
     Active Substance: BISOPROLOL
     Dosage: 1.25 MILLIGRAM, QD
     Route: 048
     Dates: end: 20250201
  16. BISOPROLOL [Suspect]
     Active Substance: BISOPROLOL
     Dosage: 1.25 MILLIGRAM, QD
     Dates: end: 20250201
  17. THIOCOLCHICOSIDE [Suspect]
     Active Substance: THIOCOLCHICOSIDE
     Indication: Muscle relaxant therapy
     Dosage: 2 DOSAGE FORM, QD
     Dates: start: 20250111, end: 20250201
  18. THIOCOLCHICOSIDE [Suspect]
     Active Substance: THIOCOLCHICOSIDE
     Dosage: 2 DOSAGE FORM, QD
     Route: 048
     Dates: start: 20250111, end: 20250201
  19. THIOCOLCHICOSIDE [Suspect]
     Active Substance: THIOCOLCHICOSIDE
     Dosage: 2 DOSAGE FORM, QD
     Route: 048
     Dates: start: 20250111, end: 20250201
  20. THIOCOLCHICOSIDE [Suspect]
     Active Substance: THIOCOLCHICOSIDE
     Dosage: 2 DOSAGE FORM, QD
     Dates: start: 20250111, end: 20250201
  21. FOLIC ACID [Suspect]
     Active Substance: FOLIC ACID
     Indication: Folate deficiency
     Dosage: 150 MILLIGRAM, QW
  22. FOLIC ACID [Suspect]
     Active Substance: FOLIC ACID
     Dosage: 150 MILLIGRAM, QW
     Route: 048
  23. FOLIC ACID [Suspect]
     Active Substance: FOLIC ACID
     Dosage: 150 MILLIGRAM, QW
     Route: 048
  24. FOLIC ACID [Suspect]
     Active Substance: FOLIC ACID
     Dosage: 150 MILLIGRAM, QW
  25. NOVATREX (METHOTREXATE) [Suspect]
     Active Substance: METHOTREXATE SODIUM
     Indication: Rheumatoid arthritis
     Dosage: 6 DOSAGE FORM, QW
     Dates: start: 20080615, end: 20250124
  26. NOVATREX (METHOTREXATE) [Suspect]
     Active Substance: METHOTREXATE SODIUM
     Dosage: 6 DOSAGE FORM, QW
     Route: 048
     Dates: start: 20080615, end: 20250124
  27. NOVATREX (METHOTREXATE) [Suspect]
     Active Substance: METHOTREXATE SODIUM
     Dosage: 6 DOSAGE FORM, QW
     Route: 048
     Dates: start: 20080615, end: 20250124
  28. NOVATREX (METHOTREXATE) [Suspect]
     Active Substance: METHOTREXATE SODIUM
     Dosage: 6 DOSAGE FORM, QW
     Dates: start: 20080615, end: 20250124
  29. HYDROCHLOROTHIAZIDE [Suspect]
     Active Substance: HYDROCHLOROTHIAZIDE
     Indication: Hypertension
     Dosage: 1 DOSAGE FORM, QD
     Dates: end: 20250201
  30. HYDROCHLOROTHIAZIDE [Suspect]
     Active Substance: HYDROCHLOROTHIAZIDE
     Dosage: 1 DOSAGE FORM, QD
     Route: 048
     Dates: end: 20250201
  31. HYDROCHLOROTHIAZIDE [Suspect]
     Active Substance: HYDROCHLOROTHIAZIDE
     Dosage: 1 DOSAGE FORM, QD
     Route: 048
     Dates: end: 20250201
  32. HYDROCHLOROTHIAZIDE [Suspect]
     Active Substance: HYDROCHLOROTHIAZIDE
     Dosage: 1 DOSAGE FORM, QD
     Dates: end: 20250201
  33. LIPTRUZET [Suspect]
     Active Substance: ATORVASTATIN CALCIUM\EZETIMIBE
     Indication: Blood cholesterol
     Dosage: 1 DOSAGE FORM, QD
     Dates: end: 20250201
  34. LIPTRUZET [Suspect]
     Active Substance: ATORVASTATIN CALCIUM\EZETIMIBE
     Dosage: 1 DOSAGE FORM, QD
     Route: 048
     Dates: end: 20250201
  35. LIPTRUZET [Suspect]
     Active Substance: ATORVASTATIN CALCIUM\EZETIMIBE
     Dosage: 1 DOSAGE FORM, QD
     Route: 048
     Dates: end: 20250201
  36. LIPTRUZET [Suspect]
     Active Substance: ATORVASTATIN CALCIUM\EZETIMIBE
     Dosage: 1 DOSAGE FORM, QD
     Dates: end: 20250201
  37. IXPRIM [Suspect]
     Active Substance: ACETAMINOPHEN\TRAMADOL HYDROCHLORIDE
     Indication: Analgesic intervention supportive therapy
     Dosage: 3 DOSAGE FORM, QD
     Dates: start: 20250111, end: 20250201
  38. IXPRIM [Suspect]
     Active Substance: ACETAMINOPHEN\TRAMADOL HYDROCHLORIDE
     Dosage: 3 DOSAGE FORM, QD
     Route: 048
     Dates: start: 20250111, end: 20250201
  39. IXPRIM [Suspect]
     Active Substance: ACETAMINOPHEN\TRAMADOL HYDROCHLORIDE
     Dosage: 3 DOSAGE FORM, QD
     Route: 048
     Dates: start: 20250111, end: 20250201
  40. IXPRIM [Suspect]
     Active Substance: ACETAMINOPHEN\TRAMADOL HYDROCHLORIDE
     Dosage: 3 DOSAGE FORM, QD
     Dates: start: 20250111, end: 20250201
  41. LOVENOX [Suspect]
     Active Substance: ENOXAPARIN SODIUM
     Indication: Thrombosis prophylaxis
     Dosage: 150 MILLIGRAM, QW
  42. LOVENOX [Suspect]
     Active Substance: ENOXAPARIN SODIUM
     Dosage: 150 MILLIGRAM, QW
     Route: 048
  43. LOVENOX [Suspect]
     Active Substance: ENOXAPARIN SODIUM
     Dosage: 150 MILLIGRAM, QW
     Route: 048
  44. LOVENOX [Suspect]
     Active Substance: ENOXAPARIN SODIUM
     Dosage: 150 MILLIGRAM, QW
  45. KARDEGIC [Concomitant]
     Active Substance: ASPIRIN DL-LYSINE
  46. KARDEGIC [Concomitant]
     Active Substance: ASPIRIN DL-LYSINE
     Route: 065
  47. KARDEGIC [Concomitant]
     Active Substance: ASPIRIN DL-LYSINE
     Route: 065
  48. KARDEGIC [Concomitant]
     Active Substance: ASPIRIN DL-LYSINE
  49. CLOPIDOGREL [Concomitant]
     Active Substance: CLOPIDOGREL BISULFATE
  50. CLOPIDOGREL [Concomitant]
     Active Substance: CLOPIDOGREL BISULFATE
     Route: 065
  51. CLOPIDOGREL [Concomitant]
     Active Substance: CLOPIDOGREL BISULFATE
     Route: 065
  52. CLOPIDOGREL [Concomitant]
     Active Substance: CLOPIDOGREL BISULFATE

REACTIONS (2)
  - Pancytopenia [Recovered/Resolved]
  - Acute kidney injury [Recovered/Resolved]

NARRATIVE: CASE EVENT DATE: 20250131
